FAERS Safety Report 8791551 (Version 3)
Quarter: 2012Q4

REPORT INFORMATION
  Report Type: Spontaneous
  Country: JP (occurrence: None)
  Receive Date: 20120913
  Receipt Date: 20121004
  Transmission Date: 20130627
  Serious: Yes (Disabling)
  Sender: FDA-Public Use
  Company Number: 2012090021

PATIENT
  Age: 85 Year
  Sex: Female

DRUGS (11)
  1. LUPRAC [Suspect]
     Indication: RENAL FAILURE CHRONIC
     Route: 048
     Dates: start: 20110620, end: 20120615
  2. LUPRAC [Suspect]
     Indication: RENAL INDUCED OEDEMA
     Route: 048
     Dates: start: 20110620, end: 20120615
  3. CELECOX (CELECOXIB) [Suspect]
     Indication: SCIATICA
     Route: 048
     Dates: start: 20110801, end: 20120615
  4. CELECOX (CELECOXIB) [Suspect]
     Indication: OSTEOPOROSIS
     Route: 048
     Dates: start: 20110801, end: 20120615
  5. OMEPRAL (OMEPRAZOLE) [Suspect]
     Indication: PROPHYLAXIS OF NSAID GASTRIC ULCERATION
     Route: 048
     Dates: start: 20110801, end: 20120615
  6. BEZATOL SR (BEZAFIBRATE) [Suspect]
     Indication: DYSLIPIDAEMIA
     Route: 048
     Dates: end: 20120615
  7. ACTONEL (SODIUM RISEDRONATE HYDRATE) [Concomitant]
  8. BLOPRESS (CANDESARTAN CILEXETIL) [Concomitant]
  9. CADEMESIN (DOXAZOSIN MESILATE) [Concomitant]
  10. AMLODIPINE (AMLODIPINE BESILATE) [Concomitant]
  11. LOXONIN (LOXOPROFEN SODIUM HYDRATE) [Concomitant]

REACTIONS (6)
  - Tubulointerstitial nephritis [None]
  - Sciatica [None]
  - Renal failure chronic [None]
  - Renal atrophy [None]
  - Renal disorder [None]
  - Renal cyst [None]
